FAERS Safety Report 7762492-X (Version None)
Quarter: 2011Q3

REPORT INFORMATION
  Report Type: 
  Country: None (occurrence: None)
  Receive Date: 20110920
  Receipt Date: 20100629
  Transmission Date: 20111222
  Serious: No
  Sender: FDA-Public Use
  Company Number: US-BAYER-201027993NA

PATIENT
  Sex: Female

DRUGS (1)
  1. MIRENA [Suspect]
     Dosage: 20 ?G (DAILY DOSE), QD, INTRA-UTERINE
     Route: 015
     Dates: start: 20080401, end: 20080725

REACTIONS (1)
  - DEVICE EXPULSION [None]
